FAERS Safety Report 16756610 (Version 6)
Quarter: 2021Q1

REPORT INFORMATION
  Report Type: Spontaneous
  Country: US (occurrence: US)
  Receive Date: 20190829
  Receipt Date: 20210123
  Transmission Date: 20210419
  Serious: No
  Sender: FDA-Public Use
  Company Number: US-009507513-1908USA011467

PATIENT
  Age: 72 Year
  Sex: Female

DRUGS (5)
  1. ASMANEX [Suspect]
     Active Substance: MOMETASONE FUROATE
     Dosage: 200 MICROGRAM
     Dates: start: 20210110
  2. ASMANEX [Suspect]
     Active Substance: MOMETASONE FUROATE
     Dosage: UNK
     Dates: start: 2011
  3. ASMANEX [Suspect]
     Active Substance: MOMETASONE FUROATE
     Indication: ASTHMA
     Dosage: ONCE A DAY IN THE EVENING
     Dates: start: 20190807
  4. ASMANEX [Suspect]
     Active Substance: MOMETASONE FUROATE
     Dosage: 1 PUFF AT NIGHT
     Dates: start: 20191126
  5. ASMANEX [Suspect]
     Active Substance: MOMETASONE FUROATE
     Dosage: UNK
     Dates: start: 20191217

REACTIONS (14)
  - Device malfunction [Unknown]
  - Frustration tolerance decreased [Unknown]
  - Device malfunction [Unknown]
  - Product packaging issue [Unknown]
  - Device malfunction [Unknown]
  - Poor quality device used [Unknown]
  - Product availability issue [Unknown]
  - Product dose omission issue [Unknown]
  - No adverse event [Unknown]
  - Poor quality device used [Unknown]
  - Poor quality device used [Unknown]
  - Device malfunction [Unknown]
  - Mobility decreased [Unknown]
  - Poor quality device used [Unknown]

NARRATIVE: CASE EVENT DATE: 201908
